FAERS Safety Report 13291767 (Version 1)
Quarter: 2017Q1

REPORT INFORMATION
  Report Type: Spontaneous
  Country: US (occurrence: US)
  Receive Date: 20170303
  Receipt Date: 20170303
  Transmission Date: 20170428
  Serious: No
  Sender: FDA-Public Use
  Company Number: US-DEPOMED, INC.-US-2016DEP009569

PATIENT

DRUGS (3)
  1. GRALISE [Suspect]
     Active Substance: GABAPENTIN
     Indication: OCCIPITAL NEURALGIA
     Dosage: 900 MG, QD
     Route: 048
     Dates: start: 2015
  2. GRALISE [Suspect]
     Active Substance: GABAPENTIN
     Dosage: 900 MG, QD
     Route: 048
     Dates: start: 2016
  3. GABAPENTIN. [Suspect]
     Active Substance: GABAPENTIN
     Indication: OCCIPITAL NEURALGIA
     Dosage: UNK

REACTIONS (4)
  - Drug administered to patient of inappropriate age [Not Recovered/Not Resolved]
  - Insomnia [Recovered/Resolved]
  - Product use issue [Not Recovered/Not Resolved]
  - Hunger [Recovered/Resolved]

NARRATIVE: CASE EVENT DATE: 2015
